FAERS Safety Report 13906005 (Version 1)
Quarter: 2017Q3

REPORT INFORMATION
  Report Type: Spontaneous
  Country: US (occurrence: US)
  Receive Date: 20170825
  Receipt Date: 20170825
  Transmission Date: 20171127
  Serious: Yes (Disabling, Other)
  Sender: FDA-Public Use
  Company Number: None

PATIENT
  Age: 54 Year
  Sex: Female
  Weight: 60.75 kg

DRUGS (1)
  1. ACYCOVIR [Suspect]
     Active Substance: ACYCLOVIR
     Route: 048

REACTIONS (3)
  - Rash generalised [None]
  - Palpitations [None]
  - Product quality issue [None]
